FAERS Safety Report 23437144 (Version 2)
Quarter: 2024Q1

REPORT INFORMATION
  Report Type: Report from Study
  Country: US (occurrence: US)
  Receive Date: 20240124
  Receipt Date: 20240213
  Transmission Date: 20240410
  Serious: Yes (Life-Threatening)
  Sender: FDA-Public Use
  Company Number: US-TEVA-VS-3144176

PATIENT
  Age: 18 Year
  Sex: Female
  Weight: 67 kg

DRUGS (8)
  1. METHOTREXATE [Suspect]
     Active Substance: METHOTREXATE
     Indication: B-cell type acute leukaemia
     Dosage: WEEKLY
     Route: 048
     Dates: start: 20221017, end: 20231224
  2. MERCAPTOPURINE [Suspect]
     Active Substance: MERCAPTOPURINE
     Indication: B-cell type acute leukaemia
     Dosage: 75 MG 5 DAYS A WEEK, 50 MG 2 DAYS A WEEK;
     Route: 065
     Dates: start: 20221216, end: 20231224
  3. MEDROXYPROGESTERONE [Concomitant]
     Active Substance: MEDROXYPROGESTERONE
  4. PHYTONADIONE [Concomitant]
     Active Substance: PHYTONADIONE
  5. PREDNISONE [Suspect]
     Active Substance: PREDNISONE
     Indication: B-cell type acute leukaemia
     Route: 048
     Dates: start: 20221011
  6. VINCRISTINE [Suspect]
     Active Substance: VINCRISTINE
     Indication: B-cell type acute leukaemia
     Route: 042
     Dates: start: 20221007, end: 20231224
  7. CYTARABINE [Suspect]
     Active Substance: CYTARABINE
     Indication: B-cell type acute leukaemia
     Route: 042
     Dates: start: 20221007, end: 20231224
  8. PENTAMIDINE [Concomitant]
     Active Substance: PENTAMIDINE

REACTIONS (5)
  - Acute respiratory failure [Unknown]
  - Pneumonia [Unknown]
  - Sepsis [Unknown]
  - Platelet count decreased [Unknown]
  - White blood cell count decreased [Unknown]

NARRATIVE: CASE EVENT DATE: 20231224
